FAERS Safety Report 7742050-3 (Version None)
Quarter: 2011Q3

REPORT INFORMATION
  Report Type: 
  Country: None (occurrence: None)
  Receive Date: 20110912
  Receipt Date: 20110901
  Transmission Date: 20111222
  Serious: Yes (Death)
  Sender: FDA-Public Use
  Company Number: PHHY2010JP10142

PATIENT
  Sex: Male

DRUGS (10)
  1. NORVASC [Concomitant]
     Dosage: 5 MG, UNK
     Route: 048
  2. ALLORINE [Concomitant]
     Dosage: 100 MG, UNK
     Route: 048
  3. TASIGNA [Suspect]
     Dosage: 800 MG, TIW
     Route: 048
     Dates: start: 20090725, end: 20090916
  4. ULCERLMIN [Concomitant]
     Dosage: 3 MG, UNK
     Route: 048
  5. LANSOPRAZOLE [Concomitant]
     Dosage: 15 MG, UNK
     Route: 048
  6. TASIGNA [Suspect]
     Dosage: 400 MG, UNK
     Route: 048
     Dates: start: 20090709, end: 20090721
  7. LASIX [Concomitant]
     Dosage: 80 MG, UNK
     Route: 048
  8. TASIGNA [Suspect]
     Dosage: 800 MG, FOUR TIMES A WEEK
     Dates: start: 20090917, end: 20100212
  9. TASIGNA [Suspect]
     Indication: CHRONIC MYELOID LEUKAEMIA
     Dosage: 200 MG, UNK
     Route: 048
     Dates: start: 20090629, end: 20090708
  10. TASIGNA [Suspect]
     Dosage: 800 MG, FOUR TIMES A WEEK
     Route: 048
     Dates: start: 20090722, end: 20090724

REACTIONS (1)
  - CEREBRAL INFARCTION [None]
